FAERS Safety Report 12837692 (Version 1)
Quarter: 2016Q4

REPORT INFORMATION
  Report Type: Spontaneous
  Country: US (occurrence: US)
  Receive Date: 20161012
  Receipt Date: 20161012
  Transmission Date: 20170207
  Serious: No
  Sender: FDA-Public Use
  Company Number: US-ASTRAZENECA-2016SF05276

PATIENT
  Age: 75 Year
  Sex: Female
  Weight: 52.2 kg

DRUGS (6)
  1. CRESTOR [Suspect]
     Active Substance: ROSUVASTATIN CALCIUM
     Indication: LOW DENSITY LIPOPROTEIN INCREASED
     Route: 048
     Dates: start: 20160928
  2. TRANXENE T-TAB [Concomitant]
     Active Substance: CLORAZEPATE DIPOTASSIUM
     Indication: ANXIETY
     Dosage: 7.5 MG
     Route: 048
  3. VERAPAMIL XR [Concomitant]
     Indication: CHEST PAIN
     Route: 048
  4. CRESTOR [Suspect]
     Active Substance: ROSUVASTATIN CALCIUM
     Indication: LOW DENSITY LIPOPROTEIN INCREASED
     Route: 048
     Dates: start: 201510, end: 201511
  5. QUINAPRIL. [Concomitant]
     Active Substance: QUINAPRIL
     Indication: HYPERTENSION
     Route: 048
  6. DYAZIDE [Concomitant]
     Active Substance: HYDROCHLOROTHIAZIDE\TRIAMTERENE
     Indication: HYPERTENSION
     Dosage: 37.5/25 MG HALF TABLET DAILY
     Route: 048

REACTIONS (7)
  - Sleep terror [Unknown]
  - Low density lipoprotein increased [Unknown]
  - Blood pressure increased [Unknown]
  - Drug dose omission [Unknown]
  - Malaise [Unknown]
  - Heart rate decreased [Unknown]
  - Off label use [Unknown]

NARRATIVE: CASE EVENT DATE: 2015
